FAERS Safety Report 5202271-0 (Version None)
Quarter: 2007Q1

REPORT INFORMATION
  Report Type: 
  Country: None (occurrence: None)
  Receive Date: 20070109
  Receipt Date: 20070102
  Transmission Date: 20070707
  Serious: Yes (Hospitalization)
  Sender: FDA-Public Use
  Company Number: FR-GLAXOSMITHKLINE-B0452650A

PATIENT
  Sex: Female
  Weight: 3 kg

DRUGS (9)
  1. EPIVIR [Suspect]
     Indication: ANTIVIRAL PROPHYLAXIS
     Dates: start: 19970901
  2. RIFADIN [Suspect]
     Indication: PULMONARY TUBERCULOSIS
     Dates: start: 19970701
  3. RIMIFON [Suspect]
     Indication: PULMONARY TUBERCULOSIS
     Dates: start: 19970701
  4. ZERIT [Suspect]
     Indication: ANTIVIRAL PROPHYLAXIS
     Dates: start: 19970901
  5. RETROVIR [Concomitant]
     Indication: HIV INFECTION
     Dates: start: 19970601, end: 19970901
  6. EPIVIR [Concomitant]
     Route: 048
     Dates: start: 19980407
  7. RETROVIR [Concomitant]
     Indication: ANTIVIRAL PROPHYLAXIS
     Route: 048
     Dates: start: 19980407
  8. VIDEX [Concomitant]
     Indication: HIV INFECTION
     Dates: start: 19970601, end: 19970901
  9. ANTI-TUBERCULOSIS MEDICATION [Concomitant]
     Indication: PULMONARY TUBERCULOSIS
     Dates: start: 19970501, end: 19970701

REACTIONS (8)
  - C-REACTIVE PROTEIN INCREASED [None]
  - CARDIAC HYPERTROPHY [None]
  - CARDIAC MURMUR [None]
  - DRUG EXPOSURE DURING PREGNANCY [None]
  - ELECTROCARDIOGRAM T WAVE ABNORMAL [None]
  - FOETAL DISTRESS SYNDROME [None]
  - MECONIUM IN AMNIOTIC FLUID [None]
  - TRICUSPID VALVE INCOMPETENCE [None]
